FAERS Safety Report 9460699 (Version 1)
Quarter: 2013Q3

REPORT INFORMATION
  Report Type: Spontaneous
  Country: BR (occurrence: None)
  Receive Date: 20130813
  Receipt Date: 20130813
  Transmission Date: 20140515
  Serious: Yes (Hospitalization)
  Sender: FDA-Public Use
  Company Number: DSJ-2013-17581

PATIENT
  Age: 58 Year
  Sex: Female

DRUGS (2)
  1. BENICAR HCT [Suspect]
     Indication: HYPERTENSION
     Dosage: 40/12.5 MG (1 IN 1 D) PER ORAL
     Route: 048
     Dates: end: 201212
  2. MEDICINE FOR DIABETES (DRUG USED IN DIABETES) [Concomitant]

REACTIONS (3)
  - Cholecystectomy [None]
  - Drug ineffective [None]
  - Drug administration error [None]
